FAERS Safety Report 9646739 (Version 1)
Quarter: 2013Q4

REPORT INFORMATION
  Report Type: Spontaneous
  Country: US (occurrence: US)
  Receive Date: 20131027
  Receipt Date: 20131027
  Transmission Date: 20140711
  Serious: Yes (Other)
  Sender: FDA-Public Use
  Company Number: US-NAPPMUNDI-USA-2013-0103411

PATIENT
  Sex: Male

DRUGS (3)
  1. OXYCODONE HYDROCHLORIDE (SIMILAR TO NDA 20-553) [Suspect]
     Indication: DRUG ABUSE
     Route: 048
  2. OXYCONTIN TABLETS [Suspect]
     Indication: DRUG ABUSE
     Route: 048
  3. ALCOHOL [Suspect]
     Indication: SUBSTANCE USE
     Route: 048

REACTIONS (4)
  - Substance abuse [Recovered/Resolved]
  - Drug withdrawal syndrome [Recovered/Resolved]
  - Insomnia [Unknown]
  - Anxiety [Unknown]
